FAERS Safety Report 4591977-2 (Version None)
Quarter: 2005Q1

REPORT INFORMATION
  Report Type: 
  Country: None (occurrence: None)
  Receive Date: 20050222
  Receipt Date: 20050210
  Transmission Date: 20050727
  Serious: Yes (Other)
  Sender: FDA-Public Use
  Company Number: 2005028609

PATIENT
  Age: 54 Year
  Sex: Female
  Weight: 57.1532 kg

DRUGS (3)
  1. NEURONTIN [Suspect]
     Indication: PAIN
     Dosage: 800 MG (400 MG, 2 AT BEDTIME), ORAL
     Route: 048
     Dates: start: 20041109, end: 20050107
  2. PHENYTOIN SODIUM [Concomitant]
  3. ALL OTHER THERAPEUTIC PRODUCTS (ALL OTHER THERAPEUTIC PRODUCTS) [Concomitant]

REACTIONS (2)
  - BLOOD URINE PRESENT [None]
  - HAEMORRHAGE [None]
